FAERS Safety Report 13264568 (Version 1)
Quarter: 2017Q1

REPORT INFORMATION
  Report Type: Report from Study
  Country: ZA (occurrence: ZA)
  Receive Date: 20170223
  Receipt Date: 20170223
  Transmission Date: 20170428
  Serious: Yes (Life-Threatening, Hospitalization, Other)
  Sender: FDA-Public Use
  Company Number: ZA-ASTRAZENECA-2017SE15128

PATIENT
  Age: 18691 Day
  Sex: Female

DRUGS (9)
  1. ACTRAPHANE [Concomitant]
     Active Substance: INSULIN HUMAN
     Indication: DIABETES MELLITUS
     Dosage: 48 IU/ML BID
     Route: 023
     Dates: start: 2009
  2. AMLODIPINE [Concomitant]
     Active Substance: AMLODIPINE BESYLATE
     Indication: HYPERTENSION
     Route: 048
     Dates: start: 2003
  3. ZOCOR [Suspect]
     Active Substance: SIMVASTATIN
     Indication: PROPHYLAXIS
     Route: 048
     Dates: start: 2010
  4. DISPRIN [Concomitant]
     Active Substance: ASPIRIN
     Indication: PROPHYLAXIS
     Route: 048
     Dates: start: 2010
  5. SLOW MAG [Concomitant]
     Active Substance: MAGNESIUM CHLORIDE
     Indication: SUPPLEMENTATION THERAPY
     Dosage: 2 TABLET DAILY
     Route: 048
     Dates: start: 2015
  6. EPANOVA [Suspect]
     Active Substance: OMEGA-3-CARBOXYLIC ACIDS
     Indication: HYPERTRIGLYCERIDAEMIA
     Route: 048
     Dates: start: 20161018, end: 20161229
  7. METFORMIN [Concomitant]
     Active Substance: METFORMIN HYDROCHLORIDE
     Indication: DIABETES MELLITUS
     Route: 048
     Dates: start: 2005
  8. VITAMIN D [Concomitant]
     Active Substance: CHOLECALCIFEROL
     Indication: PROPHYLAXIS
     Dosage: 1 TABLET DAILY
     Route: 048
     Dates: start: 2012
  9. ENALAPRIL [Concomitant]
     Active Substance: ENALAPRIL
     Indication: HYPERTENSION
     Route: 048
     Dates: start: 2003

REACTIONS (1)
  - Hypokalaemia [Recovered/Resolved]

NARRATIVE: CASE EVENT DATE: 20161227
